FAERS Safety Report 6298229-3 (Version None)
Quarter: 2009Q3

REPORT INFORMATION
  Report Type: 
  Country: None (occurrence: None)
  Receive Date: 20090805
  Receipt Date: 20090804
  Transmission Date: 20100115
  Serious: No
  Sender: FDA-Public Use
  Company Number: JP-EISAI INC.-E2020-04442-CLI-JP

PATIENT
  Sex: Female
  Weight: 68.3 kg

DRUGS (6)
  1. ARICEPT [Suspect]
     Route: 048
     Dates: start: 20080331, end: 20090117
  2. ARICEPT [Suspect]
     Route: 048
     Dates: start: 20090204, end: 20090217
  3. ARICEPT [Suspect]
     Route: 048
     Dates: start: 20090218, end: 20090303
  4. ARICEPT [Suspect]
     Route: 048
     Dates: start: 20090304
  5. LASIX [Concomitant]
  6. SPIRONOLACTONE [Concomitant]

REACTIONS (1)
  - PORIOMANIA [None]
